FAERS Safety Report 7210423-3 (Version None)
Quarter: 2011Q1

REPORT INFORMATION
  Report Type: 
  Country: None (occurrence: None)
  Receive Date: 20110105
  Receipt Date: 20101025
  Transmission Date: 20110831
  Serious: Yes (Hospitalization, Other)
  Sender: FDA-Public Use
  Company Number: US-BAYER-201013975NA

PATIENT
  Sex: Female
  Weight: 70.455 kg

DRUGS (2)
  1. YAZ [Suspect]
     Indication: PRODUCT USED FOR UNKNOWN INDICATION
     Dosage: PHARMACY RECORDS: DISPENSED FROM 27 JUN-2008 THROUGH 24-SEP-2009.
     Dates: start: 20090604
  2. YASMIN [Suspect]
     Indication: PRODUCT USED FOR UNKNOWN INDICATION
     Dosage: PHARMACY RECORDS: DISPENSED FROM 26 SEP 2006 THROUGH 25 FEB 2008
     Dates: start: 20060401, end: 20091001

REACTIONS (10)
  - VOMITING [None]
  - LIVER FUNCTION TEST ABNORMAL [None]
  - MURPHY'S SIGN POSITIVE [None]
  - NAUSEA [None]
  - CHOLELITHIASIS [None]
  - CHOLECYSTITIS [None]
  - ABDOMINAL PAIN UPPER [None]
  - ABORTION SPONTANEOUS [None]
  - LEUKOCYTOSIS [None]
  - PREGNANCY ON ORAL CONTRACEPTIVE [None]
